FAERS Safety Report 16872610 (Version 1)
Quarter: 2019Q4

REPORT INFORMATION
  Report Type: Spontaneous
  Country: US (occurrence: US)
  Receive Date: 20191001
  Receipt Date: 20191001
  Transmission Date: 20200122
  Serious: Yes (Other)
  Sender: FDA-Public Use
  Company Number: US-SPARK THERAPEUTICS, INC.-US-SPK-19-00021

PATIENT
  Age: 9 Year
  Sex: Male

DRUGS (4)
  1. LUXTURNA [Suspect]
     Active Substance: VORETIGENE NEPARVOVEC-RZYL
     Dosage: TO THE RIGHT EYE
     Route: 031
     Dates: start: 20190610, end: 20190610
  2. LUXTURNA [Suspect]
     Active Substance: VORETIGENE NEPARVOVEC-RZYL
     Indication: RETINAL DYSTROPHY
     Dosage: TO THE LEFT EYE
     Route: 031
     Dates: start: 20190513, end: 20190513
  3. LUXTURNA [Suspect]
     Active Substance: VORETIGENE NEPARVOVEC-RZYL
     Indication: RETINAL DYSTROPHY
     Dosage: TO THE LEFT EYE
     Dates: start: 20190513, end: 20190513
  4. LUXTURNA [Suspect]
     Active Substance: VORETIGENE NEPARVOVEC-RZYL
     Dosage: TO THE RIGHT EYE
     Dates: start: 20190610, end: 20190610

REACTIONS (4)
  - Photophobia [Not Recovered/Not Resolved]
  - Eye pain [Recovered/Resolved]
  - Photopsia [Unknown]
  - Cataract [Not Recovered/Not Resolved]

NARRATIVE: CASE EVENT DATE: 20190610
